FAERS Safety Report 6827037-7 (Version None)
Quarter: 2010Q3

REPORT INFORMATION
  Report Type: 
  Country: None (occurrence: None)
  Receive Date: 20100709
  Receipt Date: 20100630
  Transmission Date: 20110219
  Serious: Yes (Hospitalization)
  Sender: FDA-Public Use
  Company Number: US-MERCK-1007USA00050

PATIENT
  Age: 51 Year
  Sex: Male

DRUGS (3)
  1. ZOCOR [Suspect]
     Indication: BLOOD CHOLESTEROL INCREASED
     Route: 048
     Dates: start: 20091215, end: 20091221
  2. AMBIEN [Concomitant]
     Route: 065
  3. KLONOPIN [Concomitant]
     Route: 065

REACTIONS (9)
  - ABASIA [None]
  - ASTHENIA [None]
  - CONSTIPATION [None]
  - GUILLAIN-BARRE SYNDROME [None]
  - MUSCLE SPASMS [None]
  - MYOPATHY [None]
  - PARALYSIS [None]
  - POLYNEUROPATHY [None]
  - SENSATION OF HEAVINESS [None]
